FAERS Safety Report 4583342-9 (Version None)
Quarter: 2005Q1

REPORT INFORMATION
  Report Type: 
  Country: None (occurrence: None)
  Receive Date: 20050125
  Receipt Date: 20041006
  Transmission Date: 20050727
  Serious: No
  Sender: FDA-Public Use
  Company Number: USA031255395

PATIENT
  Age: 72 Year
  Sex: Female
  Weight: 59 kg

DRUGS (6)
  1. FORTEO [Suspect]
     Indication: OSTEOPOROSIS
     Dosage: 20 UG DAY
     Dates: start: 20031218
  2. ULTRAM [Concomitant]
  3. LANOXIN [Concomitant]
  4. ZOFRAN [Concomitant]
  5. COUMADIN [Concomitant]
  6. SYNVISC (HYALURONATE SODIUM) [Concomitant]

REACTIONS (16)
  - ABDOMINAL DISTENSION [None]
  - COAGULATION TIME PROLONGED [None]
  - CONSTIPATION [None]
  - DECREASED APPETITE [None]
  - DIZZINESS [None]
  - DYSMENORRHOEA [None]
  - EYE IRRITATION [None]
  - FATIGUE [None]
  - FEELING ABNORMAL [None]
  - HORMONE LEVEL ABNORMAL [None]
  - INSOMNIA [None]
  - NAUSEA [None]
  - PROCTALGIA [None]
  - VAGINAL DISCHARGE [None]
  - VAGINAL HAEMORRHAGE [None]
  - WEIGHT DECREASED [None]
